FAERS Safety Report 9198687 (Version 1)
Quarter: 2013Q1

REPORT INFORMATION
  Report Type: Spontaneous
  Country: US (occurrence: US)
  Receive Date: 20130329
  Receipt Date: 20130329
  Transmission Date: 20140127
  Serious: Yes (Other)
  Sender: FDA-Public Use
  Company Number: US-PFIZER INC-2013099529

PATIENT
  Sex: Male
  Weight: 102 kg

DRUGS (3)
  1. PHENYTOIN [Suspect]
     Indication: CONVULSION
     Dosage: UNK
  2. EPANUTIN [Suspect]
     Indication: CONVULSION
     Dosage: UNK
  3. ZOLOFT [Concomitant]
     Indication: DEPRESSION
     Dosage: 50 MG, 1X/DAY

REACTIONS (2)
  - Convulsion [Unknown]
  - Weight increased [Unknown]
